FAERS Safety Report 9298340 (Version 1)
Quarter: 2012Q4

REPORT INFORMATION
  Report Type: Spontaneous
  Country: GB (occurrence: None)
  Receive Date: 20121003
  Receipt Date: 20121003
  Transmission Date: 20130627
  Serious: Yes (Life-Threatening, Hospitalization)
  Sender: FDA-Public Use
  Company Number: BANPHARM-20120094

PATIENT
  Age: 82 Year
  Sex: Female

DRUGS (10)
  1. IBUPROFEN UNKNOWN PRODUCT [Suspect]
     Indication: TOOTHACHE
     Route: 048
     Dates: start: 20120107, end: 20120708
  2. PENICILLIN/ALLERGY [Concomitant]
  3. PARACETAMOL [Concomitant]
  4. CALCICHEW D3 (CALCIUM CARBONATE; CHOLECALCIFEROL) [Concomitant]
  5. CLOMETHIAZOLE (CHLORMETHIAZOLE) [Concomitant]
  6. CORSODYL (CHLORHEXIDINE GLUCONATE) [Concomitant]
  7. DOCUSATE (DOCUSATE) [Concomitant]
  8. LACTULOSE (LACTULOSE) [Concomitant]
  9. OMEPRAZOLE (OMEPRAZOLE) [Concomitant]
  10. RISEDRONATE (RISEDRONIC ACID) [Concomitant]

REACTIONS (4)
  - Small intestinal haemorrhage [None]
  - Duodenal ulcer [None]
  - Syncope [None]
  - Fall [None]
